FAERS Safety Report 5268637-8 (Version None)
Quarter: 2007Q1

REPORT INFORMATION
  Report Type: 
  Country: None (occurrence: None)
  Receive Date: 20070313
  Receipt Date: 20070310
  Transmission Date: 20070707
  Serious: No
  Sender: FDA-Public Use
  Company Number: 236215

PATIENT
  Age: 54 Year
  Sex: Female

DRUGS (2)
  1. MABTHERA (RITUXIMAB) CONC FOR SOLUTION FOR INFUSION [Suspect]
     Indication: RHEUMATOID ARTHRITIS
  2. PRE-MEDICATIONS (UNK INGREDIENTS) (GENERIC COMPONENT(S) UNOT UNKNOWN) [Concomitant]

REACTIONS (3)
  - ALANINE AMINOTRANSFERASE INCREASED [None]
  - ARTHRALGIA [None]
  - DRUG INEFFECTIVE [None]
